FAERS Safety Report 10651793 (Version 1)
Quarter: 2014Q4

REPORT INFORMATION
  Report Type: Spontaneous
  Country: US (occurrence: US)
  Receive Date: 20141215
  Receipt Date: 20141215
  Transmission Date: 20150529
  Serious: No
  Sender: FDA-Public Use
  Company Number: US-PFIZER INC-2014338875

PATIENT
  Age: 52 Year
  Sex: Female

DRUGS (1)
  1. AVINZA [Suspect]
     Active Substance: MORPHINE SULFATE
     Dosage: UNK

REACTIONS (2)
  - Pharyngeal disorder [Unknown]
  - Flushing [Unknown]
